FAERS Safety Report 7164727-3 (Version None)
Quarter: 2010Q4

REPORT INFORMATION
  Report Type: 
  Country: None (occurrence: None)
  Receive Date: 20101215
  Receipt Date: 20101207
  Transmission Date: 20110411
  Serious: Yes (Other)
  Sender: FDA-Public Use
  Company Number: FR-PFIZER INC-2010165632

PATIENT
  Age: 48 Year
  Sex: Female

DRUGS (1)
  1. DOSTINEX [Suspect]
     Indication: ADENOMA BENIGN
     Dosage: 0.5 MG, WEEKLY
     Dates: start: 20100101

REACTIONS (1)
  - PATHOLOGICAL GAMBLING [None]
